FAERS Safety Report 24938546 (Version 1)
Quarter: 2025Q1

REPORT INFORMATION
  Report Type: Spontaneous
  Country: US (occurrence: US)
  Receive Date: 20250206
  Receipt Date: 20250206
  Transmission Date: 20250409
  Serious: No
  Sender: SANOFI AVENTIS
  Company Number: US-SA-2025SA035492

PATIENT
  Age: 53 Year
  Sex: Female

DRUGS (1)
  1. DUPIXENT [Suspect]
     Active Substance: DUPILUMAB
     Indication: Nasal polyps
     Dosage: QOW 300MG
     Route: 058

REACTIONS (5)
  - Urticaria [Unknown]
  - Pruritus [Unknown]
  - Therapeutic response shortened [Unknown]
  - Skin irritation [Unknown]
  - Arthralgia [Unknown]
